FAERS Safety Report 6631638-9 (Version None)
Quarter: 2010Q1

REPORT INFORMATION
  Report Type: 
  Country: None (occurrence: None)
  Receive Date: 20100312
  Receipt Date: 20100225
  Transmission Date: 20100710
  Serious: Yes (Death, Hospitalization)
  Sender: FDA-Public Use
  Company Number: CH-CELGENEUS-151-50794-10011231

PATIENT
  Age: 79 Year
  Sex: Male

DRUGS (9)
  1. VIDAZA [Suspect]
     Route: 058
     Dates: start: 20091221, end: 20091225
  2. CITALOPRAM HYDROBROMIDE [Concomitant]
     Indication: DRUG USE FOR UNKNOWN INDICATION
     Route: 065
  3. TAMSULOSIN HCL [Concomitant]
     Indication: DRUG USE FOR UNKNOWN INDICATION
     Route: 065
  4. ALLOPURINOL [Concomitant]
     Indication: DRUG USE FOR UNKNOWN INDICATION
     Route: 065
  5. PARACETAMOL [Concomitant]
     Indication: DRUG USE FOR UNKNOWN INDICATION
     Route: 065
  6. LEVOFLOXACIN [Concomitant]
     Route: 065
  7. LEVOFLOXACIN [Concomitant]
     Indication: PNEUMONIA
     Route: 065
  8. TORSEMIDE [Concomitant]
     Indication: DRUG USE FOR UNKNOWN INDICATION
     Route: 065
  9. CEFEPIME [Concomitant]
     Indication: DRUG USE FOR UNKNOWN INDICATION
     Route: 065
     Dates: start: 20100117

REACTIONS (2)
  - CARDIAC FAILURE [None]
  - PNEUMONIA [None]
